FAERS Safety Report 22237404 (Version 1)
Quarter: 2023Q2

REPORT INFORMATION
  Report Type: Spontaneous
  Country: ZA (occurrence: ZA)
  Receive Date: 20230421
  Receipt Date: 20230421
  Transmission Date: 20230722
  Serious: Yes (Death)
  Sender: FDA-Public Use
  Company Number: ZA-TOLMAR, INC.-23ZA039800

PATIENT
  Sex: Female

DRUGS (1)
  1. ELIGARD [Suspect]
     Active Substance: LEUPROLIDE ACETATE
     Indication: Lymphoma
     Dosage: 45 MILLIGRAM
     Dates: start: 20221219, end: 20230406

REACTIONS (3)
  - B-cell lymphoma [Fatal]
  - Heavy menstrual bleeding [Unknown]
  - Off label use [Unknown]

NARRATIVE: CASE EVENT DATE: 20230311
